FAERS Safety Report 8529736-8 (Version None)
Quarter: 2012Q3

REPORT INFORMATION
  Report Type: 
  Country: None (occurrence: None)
  Receive Date: 20120723
  Receipt Date: 20120717
  Transmission Date: 20120928
  Serious: Yes (Other)
  Sender: FDA-Public Use
  Company Number: US-JNJFOC-20120520981

PATIENT
  Sex: Female
  Weight: 192.78 kg

DRUGS (13)
  1. METFORMIN HYDROCHLORIDE [Concomitant]
     Indication: DIABETES MELLITUS
     Route: 048
  2. KLOR-CON [Concomitant]
     Indication: BLOOD POTASSIUM DECREASED
     Route: 048
  3. FENTANYL-100 [Suspect]
     Indication: NEUROPATHY PERIPHERAL
     Dosage: NDC#0781 7244 55
     Route: 062
  4. LASIX [Concomitant]
     Indication: SWELLING
     Route: 048
  5. LOVASTATIN [Concomitant]
     Route: 048
  6. HYDROCODONE BITARTRATE AND ACETAMINOPHEN [Concomitant]
     Indication: PAIN
     Route: 048
  7. LISINOPRIL [Concomitant]
     Indication: HYPERTENSION
     Route: 048
  8. SYNTHROID [Concomitant]
     Indication: THYROID DISORDER
     Route: 048
  9. OMEPRAZOLE [Concomitant]
     Route: 048
  10. ALPRAZOLAM [Concomitant]
     Indication: ANXIETY
     Route: 048
  11. FENTANYL-100 [Suspect]
     Indication: NEUROPATHY PERIPHERAL
     Route: 062
     Dates: start: 20020101
  12. LORATADINE [Concomitant]
     Indication: SEASONAL ALLERGY
     Route: 048
  13. CREON [Concomitant]
     Indication: DYSPEPSIA
     Dosage: 12000/EACH MEAL PP
     Route: 047

REACTIONS (8)
  - INAPPROPRIATE SCHEDULE OF DRUG ADMINISTRATION [None]
  - SKIN ULCER [None]
  - WEIGHT INCREASED [None]
  - WEIGHT DECREASED [None]
  - CONVULSION [None]
  - MUSCLE TWITCHING [None]
  - FORMICATION [None]
  - KNEE OPERATION [None]
